FAERS Safety Report 5888196-6 (Version None)
Quarter: 2008Q3

REPORT INFORMATION
  Report Type: 
  Country: None (occurrence: None)
  Receive Date: 20080918
  Receipt Date: 20080903
  Transmission Date: 20090109
  Serious: Yes (Death)
  Sender: FDA-Public Use
  Company Number: JP-GENENTECH-254295

PATIENT
  Sex: Male
  Weight: 50 kg

DRUGS (6)
  1. BEVACIZUMAB [Suspect]
     Indication: COLON CANCER METASTATIC
     Dosage: 5 MG/KG, Q2W
     Route: 041
     Dates: start: 20071022
  2. FLUOROURACIL [Suspect]
     Indication: COLON CANCER METASTATIC
     Dosage: 700 MG, QD
     Route: 042
     Dates: start: 20071003, end: 20071218
  3. OXALIPLATIN [Concomitant]
     Indication: COLON CANCER METASTATIC
     Dosage: UNK, UNK
     Route: 041
     Dates: start: 20071003, end: 20071119
  4. LEUCOVORIN CALCIUM [Concomitant]
     Indication: COLON CANCER METASTATIC
     Dosage: UNK, UNK
     Route: 041
     Dates: start: 20071003, end: 20071218
  5. IRINOTECAN HCL [Concomitant]
     Indication: DRUG USE FOR UNKNOWN INDICATION
     Dosage: UNK, UNK
     Dates: start: 20071203, end: 20071217
  6. NATEGLINIDE [Concomitant]
     Indication: DRUG USE FOR UNKNOWN INDICATION
     Dosage: UNK, UNK
     Dates: start: 20070929, end: 20071220

REACTIONS (5)
  - ACUTE RESPIRATORY DISTRESS SYNDROME [None]
  - JUGULAR VEIN THROMBOSIS [None]
  - PELVIC VENOUS THROMBOSIS [None]
  - PYREXIA [None]
  - STOMATITIS [None]
